FAERS Safety Report 23051501 (Version 1)
Quarter: 2023Q4

REPORT INFORMATION
  Report Type: Report from Study
  Country: US (occurrence: US)
  Receive Date: 20231010
  Receipt Date: 20231010
  Transmission Date: 20240110
  Serious: Yes (Other)
  Sender: FDA-Public Use
  Company Number: US-BEIGENE-BGN-2023-011276

PATIENT

DRUGS (8)
  1. BRUKINSA [Suspect]
     Active Substance: ZANUBRUTINIB
     Indication: B-cell small lymphocytic lymphoma
     Dosage: 320 MILLIGRAM, QD
     Route: 048
  2. BIOTIN [Concomitant]
     Active Substance: BIOTIN
  3. HYDROCHLOROTHIAZIDE [Concomitant]
     Active Substance: HYDROCHLOROTHIAZIDE
  4. LOSARTAN [Concomitant]
     Active Substance: LOSARTAN
  5. SIMVASTATIN [Concomitant]
     Active Substance: SIMVASTATIN
  6. VITAMINS [Concomitant]
     Active Substance: VITAMINS
  7. FINASTERIDE [Concomitant]
     Active Substance: FINASTERIDE
  8. METFORMIN [Concomitant]
     Active Substance: METFORMIN HYDROCHLORIDE

REACTIONS (2)
  - Pancytopenia [Recovering/Resolving]
  - Febrile neutropenia [Recovering/Resolving]
